FAERS Safety Report 7810289-4 (Version None)
Quarter: 2011Q4

REPORT INFORMATION
  Report Type: 
  Country: None (occurrence: None)
  Receive Date: 20111012
  Receipt Date: 20111010
  Transmission Date: 20120403
  Serious: Yes (Death)
  Sender: FDA-Public Use
  Company Number: VE-PFIZER INC-2011235524

PATIENT
  Age: 60 Year
  Sex: Male

DRUGS (3)
  1. ACETYLSALICYLIC ACID [Concomitant]
     Indication: HYPERTENSION
     Dosage: UNK
     Route: 048
  2. PLAVIX [Concomitant]
     Indication: HYPERTENSION
     Dosage: 75 MG, 1X/DAY
     Route: 048
  3. LIPITOR [Suspect]
     Dosage: UNK
     Route: 048
     Dates: start: 20090101

REACTIONS (3)
  - RENAL FAILURE [None]
  - PULMONARY OEDEMA [None]
  - RESPIRATORY ARREST [None]
